FAERS Safety Report 17160237 (Version 1)
Quarter: 2019Q4

REPORT INFORMATION
  Report Type: Spontaneous
  Country: US (occurrence: US)
  Receive Date: 20191216
  Receipt Date: 20191216
  Transmission Date: 20200122
  Serious: No
  Sender: FDA-Public Use
  Company Number: US-ASTRAZENECA-2019SF77255

PATIENT
  Sex: Male
  Weight: 8.2 kg

DRUGS (2)
  1. POLY-VI-SOL WITH IRON [Concomitant]
     Active Substance: IRON\VITAMINS
     Route: 065
  2. SYNAGIS [Suspect]
     Active Substance: PALIVIZUMAB
     Indication: BRONCHOPULMONARY DYSPLASIA
     Route: 030

REACTIONS (1)
  - Ear infection [Unknown]
